FAERS Safety Report 14088379 (Version 2)
Quarter: 2017Q4

REPORT INFORMATION
  Report Type: Report from Study
  Country: US (occurrence: US)
  Receive Date: 20171013
  Receipt Date: 20171213
  Transmission Date: 20180321
  Serious: Yes (Other)
  Sender: FDA-Public Use
  Company Number: US-AMGEN-USASL2017069551

PATIENT
  Age: 76 Year
  Sex: Female

DRUGS (1)
  1. REPATHA [Suspect]
     Active Substance: EVOLOCUMAB
     Indication: LOW DENSITY LIPOPROTEIN INCREASED
     Dosage: 140 MG, Q2WK
     Route: 065
     Dates: start: 20170413

REACTIONS (5)
  - Gait inability [Recovering/Resolving]
  - Breast cancer female [Unknown]
  - Arthropathy [Unknown]
  - Arthritis [Unknown]
  - Dysstasia [Unknown]

NARRATIVE: CASE EVENT DATE: 201704
